FAERS Safety Report 7901471-6 (Version None)
Quarter: 2011Q4

REPORT INFORMATION
  Report Type: 
  Country: None (occurrence: None)
  Receive Date: 20111108
  Receipt Date: 20111031
  Transmission Date: 20120403
  Serious: Yes (Hospitalization)
  Sender: FDA-Public Use
  Company Number: CA-JNJFOC-20111101618

PATIENT
  Sex: Female
  Weight: 59 kg

DRUGS (4)
  1. PREVACID [Concomitant]
     Route: 065
  2. IMURAN [Concomitant]
     Route: 065
  3. ZOPICLONE [Concomitant]
     Route: 065
  4. REMICADE [Suspect]
     Indication: CROHN'S DISEASE
     Route: 042
     Dates: start: 20101027

REACTIONS (1)
  - ILEOSTOMY CLOSURE [None]
